FAERS Safety Report 8067002-8 (Version None)
Quarter: 2012Q1

REPORT INFORMATION
  Report Type: 
  Country: None (occurrence: None)
  Receive Date: 20120124
  Receipt Date: 20120112
  Transmission Date: 20120608
  Serious: Yes (Hospitalization)
  Sender: FDA-Public Use
  Company Number: IN-MERCK-1201USA02152

PATIENT

DRUGS (1)
  1. CANCIDAS [Suspect]
     Route: 065

REACTIONS (1)
  - CARDIOVASCULAR DISORDER [None]
